FAERS Safety Report 10896891 (Version 1)
Quarter: 2015Q1

REPORT INFORMATION
  Report Type: Report from Study
  Country: KR (occurrence: KR)
  Receive Date: 20150309
  Receipt Date: 20150309
  Transmission Date: 20150721
  Serious: Yes (Other)
  Sender: FDA-Public Use
  Company Number: KR-BAYER-2014-141071

PATIENT
  Age: 48 Year
  Sex: Female

DRUGS (6)
  1. STIVARGA [Suspect]
     Active Substance: REGORAFENIB
     Indication: COLORECTAL CANCER METASTATIC
     Dosage: 160 MG, QD
     Route: 048
     Dates: start: 20141013, end: 20141102
  2. STIVARGA [Suspect]
     Active Substance: REGORAFENIB
     Indication: COLORECTAL CANCER METASTATIC
     Dosage: 160 MG, QD
     Route: 048
     Dates: start: 20150202, end: 201502
  3. STIVARGA [Suspect]
     Active Substance: REGORAFENIB
     Indication: COLORECTAL CANCER METASTATIC
     Dosage: 160 MG, QD
     Route: 048
     Dates: start: 20141110, end: 20141130
  4. STIVARGA [Suspect]
     Active Substance: REGORAFENIB
     Indication: COLORECTAL CANCER METASTATIC
     Dosage: 160 MG, QD
     Route: 048
     Dates: start: 20141208, end: 20141228
  5. STIVARGA [Suspect]
     Active Substance: REGORAFENIB
     Indication: COLORECTAL CANCER METASTATIC
     Dosage: 160 MG, QD
     Route: 048
     Dates: start: 20140915, end: 20141005
  6. STIVARGA [Suspect]
     Active Substance: REGORAFENIB
     Indication: COLORECTAL CANCER METASTATIC
     Dosage: 160 MG, QD
     Route: 048
     Dates: start: 20150105, end: 20150125

REACTIONS (18)
  - Feeding disorder [None]
  - Skin exfoliation [Recovering/Resolving]
  - Pain [None]
  - Paraesthesia oral [None]
  - Abdominal pain [Recovering/Resolving]
  - Cough [Recovering/Resolving]
  - Nasopharyngitis [Recovering/Resolving]
  - Weight decreased [None]
  - Rhinorrhoea [Recovering/Resolving]
  - Pruritus [None]
  - Hyperkeratosis [Recovering/Resolving]
  - Arthralgia [None]
  - Erythema [Recovered/Resolved]
  - Alopecia [None]
  - Abdominal pain upper [Recovering/Resolving]
  - Blood pressure increased [None]
  - Arthritis [Recovered/Resolved]
  - Aphthous stomatitis [Recovering/Resolving]

NARRATIVE: CASE EVENT DATE: 201409
